FAERS Safety Report 16730875 (Version 1)
Quarter: 2019Q3

REPORT INFORMATION
  Report Type: Spontaneous
  Country: DE (occurrence: DE)
  Receive Date: 20190822
  Receipt Date: 20190822
  Transmission Date: 20191005
  Serious: Yes (Other)
  Sender: FDA-Public Use
  Company Number: PHHY2019DE193891

PATIENT
  Sex: Female

DRUGS (1)
  1. NEVANAC [Suspect]
     Active Substance: NEPAFENAC
     Indication: PROCEDURAL PAIN
     Dosage: UNK
     Route: 047
     Dates: start: 201811, end: 2018

REACTIONS (2)
  - Optic neuritis [Unknown]
  - Blindness [Unknown]

NARRATIVE: CASE EVENT DATE: 201811
